FAERS Safety Report 16182277 (Version 1)
Quarter: 2019Q2

REPORT INFORMATION
  Report Type: Spontaneous
  Country: FR (occurrence: DE)
  Receive Date: 20190410
  Receipt Date: 20190410
  Transmission Date: 20190711
  Serious: Yes (Hospitalization)
  Sender: FDA-Public Use
  Company Number: FR-JAZZ-2019-DE-005049

PATIENT
  Age: 20 Year
  Sex: Female

DRUGS (2)
  1. XYREM [Suspect]
     Active Substance: SODIUM OXYBATE
     Indication: NARCOLEPSY
     Dosage: 6 GRAM EVERY 24 HOUR
     Route: 048
  2. DEXAMFETAMINE [Suspect]
     Active Substance: DEXTROAMPHETAMINE
     Indication: NARCOLEPSY
     Dosage: 30 MILLIGRAM EVERY 24 HOUR
     Route: 048

REACTIONS (3)
  - Hypnagogic hallucination [Recovered/Resolved]
  - Burnout syndrome [Recovered/Resolved]
  - Emotional poverty [Recovered/Resolved]
